FAERS Safety Report 6469475-0 (Version None)
Quarter: 2009Q4

REPORT INFORMATION
  Report Type: 
  Country: None (occurrence: None)
  Receive Date: 20091203
  Receipt Date: 20091125
  Transmission Date: 20100525
  Serious: Yes (Other)
  Sender: FDA-Public Use
  Company Number: FR-AMGEN-US369639

PATIENT
  Sex: Male
  Weight: 70 kg

DRUGS (4)
  1. ENBREL [Suspect]
     Indication: ANKYLOSING SPONDYLITIS
     Route: 058
     Dates: start: 20090101
  2. METHOTREXATE [Suspect]
     Indication: ANKYLOSING SPONDYLITIS
     Dosage: 12.5 MG TOTAL WEEKLY
     Route: 048
     Dates: start: 20080715, end: 20090801
  3. METHOTREXATE [Suspect]
     Dosage: 12.5 MG TOTAL WEEKLY
     Route: 048
     Dates: start: 20090901
  4. CELEBREX [Concomitant]
     Indication: ANKYLOSING SPONDYLITIS
     Dosage: 400 MG TOTAL DAILY
     Route: 048
     Dates: start: 20080101

REACTIONS (5)
  - HAEMATURIA [None]
  - NAUSEA [None]
  - PYELONEPHRITIS [None]
  - SEPSIS [None]
  - URETHRITIS [None]
